FAERS Safety Report 4717055-7 (Version None)
Quarter: 2005Q3

REPORT INFORMATION
  Report Type: 
  Country: None (occurrence: None)
  Receive Date: 20050712
  Receipt Date: 20040930
  Transmission Date: 20060218
  Serious: Yes (Other)
  Sender: FDA-Public Use
  Company Number: PHEH2004US10579

PATIENT
  Sex: Female

DRUGS (2)
  1. GLEEVEC [Suspect]
     Indication: CHRONIC MYELOID LEUKAEMIA
     Dosage: SEE IMAGE
     Route: 065
  2. INTERFERON (INTERFERON) [Concomitant]

REACTIONS (3)
  - CHROMOSOME ABNORMALITY [None]
  - NEUTROPHIL COUNT DECREASED [None]
  - PANCYTOPENIA [None]
